FAERS Safety Report 9564871 (Version 3)
Quarter: 2014Q1

REPORT INFORMATION
  Report Type: Report from Study
  Country: CA (occurrence: CA)
  Receive Date: 20130930
  Receipt Date: 20140227
  Transmission Date: 20141002
  Serious: Yes (Other)
  Sender: FDA-Public Use
  Company Number: PHHY2013CA105204

PATIENT
  Age: 64 Year
  Sex: Male

DRUGS (3)
  1. GLEEVEC [Suspect]
     Indication: CHRONIC MYELOID LEUKAEMIA
     Dosage: 400 MG, DAILY
     Route: 048
     Dates: start: 2007
  2. GLEEVEC [Suspect]
     Dosage: 400 MG, QD
     Route: 048
     Dates: start: 200703
  3. IMATINIB [Concomitant]

REACTIONS (7)
  - Prostate cancer [Unknown]
  - Second primary malignancy [Unknown]
  - Myalgia [Recovering/Resolving]
  - Sexual dysfunction [Unknown]
  - Bone pain [Unknown]
  - Arthritis [Unknown]
  - White blood cell count increased [Unknown]
